FAERS Safety Report 4324046-7 (Version None)
Quarter: 2004Q1

REPORT INFORMATION
  Report Type: 
  Country: None (occurrence: None)
  Receive Date: 20040326
  Receipt Date: 20031211
  Transmission Date: 20041129
  Serious: No
  Sender: FDA-Public Use
  Company Number: US-GLAXOSMITHKLINE-A0442793A

PATIENT
  Age: 58 Year
  Sex: Female

DRUGS (12)
  1. ADVAIR DISKUS 100/50 [Suspect]
     Indication: ASTHMA
     Dosage: 1PUFF TWICE PER DAY
     Route: 055
  2. CELEXA [Concomitant]
  3. UNKNOWN MEDICATION [Concomitant]
  4. TEMAZEPAM [Concomitant]
  5. CIMETIDINE HCL [Concomitant]
  6. TOPAMAX [Concomitant]
  7. SYNTHROID [Concomitant]
  8. SULFASALAZIN [Concomitant]
  9. MULTI-VITAMIN [Concomitant]
  10. SINGULAIR [Concomitant]
     Dosage: 10MG UNKNOWN
  11. LOTENSIN [Concomitant]
  12. PROVENTIL [Concomitant]

REACTIONS (3)
  - COLITIS [None]
  - COUGH [None]
  - DIVERTICULITIS [None]
